FAERS Safety Report 5897371-6 (Version None)
Quarter: 2008Q3

REPORT INFORMATION
  Report Type: 
  Country: None (occurrence: None)
  Receive Date: 20080915
  Receipt Date: 20070803
  Transmission Date: 20090109
  Serious: Yes (Hospitalization)
  Sender: FDA-Public Use
  Company Number: PHEH2007US04896

PATIENT
  Age: 56 Year
  Sex: Female

DRUGS (8)
  1. ZELNORM [Suspect]
     Indication: IRRITABLE BOWEL SYNDROME
     Dosage: 6 MG, BID, ORAL
     Route: 048
     Dates: start: 20030101, end: 20070409
  2. TOPROL-XL [Concomitant]
  3. ZESTRIL [Concomitant]
  4. LIPITOR [Concomitant]
  5. DETROL LA [Concomitant]
  6. IMIPRAM TAB [Concomitant]
  7. FOSAMAX [Concomitant]
  8. NALTREXONE (NALTREXONE) [Concomitant]

REACTIONS (1)
  - ANGINA PECTORIS [None]
